FAERS Safety Report 8249303-3 (Version None)
Quarter: 2012Q1

REPORT INFORMATION
  Report Type: 
  Country: None (occurrence: None)
  Receive Date: 20120327
  Receipt Date: 20120322
  Transmission Date: 20120608
  Serious: Yes (Death)
  Sender: FDA-Public Use
  Company Number: 2011SP021427

PATIENT
  Age: 26 Year
  Sex: Female
  Weight: 140.1615 kg

DRUGS (2)
  1. NUVARING [Suspect]
     Dates: end: 20061101
  2. NUVARING [Suspect]
     Dates: end: 20080507

REACTIONS (23)
  - JOINT SWELLING [None]
  - DEEP VEIN THROMBOSIS [None]
  - PALLOR [None]
  - CYANOSIS [None]
  - ACCIDENTAL DEATH [None]
  - MATERNAL EXPOSURE DURING PREGNANCY [None]
  - RETAINED PRODUCTS OF CONCEPTION [None]
  - ENDOMETRIAL HYPERTROPHY [None]
  - PAIN IN EXTREMITY [None]
  - ABORTION SPONTANEOUS [None]
  - PUPIL FIXED [None]
  - PULMONARY ARTERIAL HYPERTENSION [None]
  - LIMB INJURY [None]
  - PULMONARY EMBOLISM [None]
  - CARDIO-RESPIRATORY ARREST [None]
  - ANXIETY [None]
  - PREGNANCY WITH CONTRACEPTIVE DEVICE [None]
  - WHITE BLOOD CELL COUNT INCREASED [None]
  - FALL [None]
  - OBESITY [None]
  - OVARIAN CYST [None]
  - GAIT DISTURBANCE [None]
  - HYPERHIDROSIS [None]
